FAERS Safety Report 23611186 (Version 1)
Quarter: 2024Q1

REPORT INFORMATION
  Report Type: Report from Study
  Country: BE (occurrence: BE)
  Receive Date: 20240308
  Receipt Date: 20240308
  Transmission Date: 20240410
  Serious: Yes (Other)
  Sender: FDA-Public Use
  Company Number: BE-JNJFOC-20180210681

PATIENT
  Age: 65 Year
  Sex: Male

DRUGS (3)
  1. IBRUTINIB [Suspect]
     Active Substance: IBRUTINIB
     Indication: Mantle cell lymphoma
     Route: 048
     Dates: start: 20170214, end: 20170601
  2. IBRUTINIB [Suspect]
     Active Substance: IBRUTINIB
     Indication: Mantle cell lymphoma
     Route: 048
     Dates: start: 20170630, end: 20180723
  3. IBRUTINIB [Suspect]
     Active Substance: IBRUTINIB
     Indication: Mantle cell lymphoma
     Route: 048
     Dates: start: 20181003

REACTIONS (8)
  - Sudden hearing loss [Recovered/Resolved]
  - Diarrhoea [Recovered/Resolved]
  - Vasculitis [Recovered/Resolved]
  - Mononeuropathy [Not Recovered/Not Resolved]
  - Epistaxis [Recovered/Resolved]
  - Rib fracture [Recovered/Resolved]
  - Bronchitis [Recovered/Resolved]
  - Iron deficiency [Not Recovered/Not Resolved]

NARRATIVE: CASE EVENT DATE: 20170501
